FAERS Safety Report 7451536-0 (Version None)
Quarter: 2011Q2

REPORT INFORMATION
  Report Type: 
  Country: None (occurrence: None)
  Receive Date: 20110502
  Receipt Date: 20110420
  Transmission Date: 20111010
  Serious: Yes (Other)
  Sender: FDA-Public Use
  Company Number: PHHY2010DE75813

PATIENT
  Age: 69 Year
  Sex: Female
  Weight: 78 kg

DRUGS (2)
  1. ACLASTA [Suspect]
     Indication: OSTEOPOROSIS
     Dosage: UNK
     Route: 042
     Dates: start: 20100114
  2. CALCIMAGON-D3 [Concomitant]
     Dosage: 500 MG, DAILY
     Dates: start: 20091007

REACTIONS (16)
  - INSOMNIA [None]
  - FATIGUE [None]
  - CHILLS [None]
  - POLLAKIURIA [None]
  - PARAESTHESIA [None]
  - CHEST PAIN [None]
  - HYPOAESTHESIA [None]
  - BOWEL MOVEMENT IRREGULARITY [None]
  - COUGH [None]
  - DYSPEPSIA [None]
  - JOINT SWELLING [None]
  - DYSPNOEA [None]
  - MUSCULOSKELETAL DISCOMFORT [None]
  - DRY MOUTH [None]
  - OEDEMA PERIPHERAL [None]
  - QUALITY OF LIFE DECREASED [None]
